FAERS Safety Report 15147817 (Version 1)
Quarter: 2018Q3

REPORT INFORMATION
  Report Type: Spontaneous
  Country: US (occurrence: US)
  Receive Date: 20180619
  Receipt Date: 20180619
  Transmission Date: 20181010
  Serious: No
  Sender: FDA-Public Use
  Company Number: None

PATIENT
  Age: 65 Year
  Sex: Male

DRUGS (1)
  1. LUPRON DEPOT [Suspect]
     Active Substance: LEUPROLIDE ACETATE
     Indication: NEOPLASM MALIGNANT
     Dosage: 22.5MG EVERY 12 WEEKS INTRAMUSCULARLY?          ?
     Route: 030
     Dates: start: 20170929, end: 20180301

REACTIONS (7)
  - Anxiety [None]
  - Amnesia [None]
  - Weight increased [None]
  - Fatigue [None]
  - Muscle atrophy [None]
  - Asthenia [None]
  - Depression [None]

NARRATIVE: CASE EVENT DATE: 20180201
